FAERS Safety Report 10270279 (Version 4)
Quarter: 2014Q4

REPORT INFORMATION
  Report Type: Spontaneous
  Country: PT (occurrence: PT)
  Receive Date: 20140701
  Receipt Date: 20141210
  Transmission Date: 20150528
  Serious: Yes (Other)
  Sender: FDA-Public Use
  Company Number: PT-SA-2014SA081604

PATIENT
  Age: 60 Year
  Sex: Male

DRUGS (10)
  1. ASPIRINA [Concomitant]
     Active Substance: ASPIRIN
  2. PERINDOPRIL [Concomitant]
     Active Substance: PERINDOPRIL
  3. SPIRONOLACTONE. [Concomitant]
     Active Substance: SPIRONOLACTONE
  4. LYRICA [Concomitant]
     Active Substance: PREGABALIN
     Indication: NEURALGIA
  5. ENBREL [Suspect]
     Active Substance: ETANERCEPT
     Indication: ANKYLOSING SPONDYLITIS
     Route: 058
     Dates: start: 201012, end: 201409
  6. LANOXIN [Concomitant]
     Active Substance: DIGOXIN
  7. CRESTOR [Concomitant]
     Active Substance: ROSUVASTATIN CALCIUM
  8. METHOTREXATE SODIUM. [Suspect]
     Active Substance: METHOTREXATE SODIUM
     Indication: ANKYLOSING SPONDYLITIS
     Dosage: 3 DF=7.5 ?MG 2X7DAY ON ONE DAY OF ?THE WEEK); ORA
     Route: 048
     Dates: start: 20111130
  9. CARVEDILOL. [Concomitant]
     Active Substance: CARVEDILOL
  10. LANTUS [Suspect]
     Active Substance: INSULIN GLARGINE
     Indication: DIABETES MELLITUS
     Route: 065

REACTIONS (3)
  - Bladder neoplasm [Unknown]
  - Tumour haemorrhage [Unknown]
  - Bladder cancer [Unknown]

NARRATIVE: CASE EVENT DATE: 2014
